FAERS Safety Report 9156319 (Version 3)
Quarter: 2013Q4

REPORT INFORMATION
  Report Type: Spontaneous
  Country: US (occurrence: US)
  Receive Date: 20130312
  Receipt Date: 20131224
  Transmission Date: 20140711
  Serious: Yes (Other)
  Sender: FDA-Public Use
  Company Number: US-AMGEN-USASP2013016622

PATIENT
  Sex: 0

DRUGS (2)
  1. ENBREL [Suspect]
     Indication: PRODUCT USED FOR UNKNOWN INDICATION
     Dosage: 50 MG, QWK
     Route: 064
     Dates: start: 20050101
  2. CELEXA                             /00582602/ [Concomitant]
     Dosage: 40 MG, QD
     Route: 064
     Dates: start: 201005

REACTIONS (5)
  - Shoulder dystocia [Recovered/Resolved]
  - Pain [Unknown]
  - Teething [Unknown]
  - Ear infection [Unknown]
  - Herpes ophthalmic [Unknown]
